FAERS Safety Report 25764223 (Version 1)
Quarter: 2025Q3

REPORT INFORMATION
  Report Type: Spontaneous
  Country: US (occurrence: US)
  Receive Date: 20250905
  Receipt Date: 20250905
  Transmission Date: 20251021
  Serious: No
  Sender: DOMPE FARMACEUTICI
  Company Number: US-FARMAPROD-202412-4360

PATIENT
  Sex: Female

DRUGS (8)
  1. OXERVATE [Suspect]
     Active Substance: CENEGERMIN-BKBJ
     Indication: Neurotrophic keratopathy
     Route: 047
     Dates: start: 20241212
  2. FISH OIL [Concomitant]
     Active Substance: FISH OIL
     Route: 048
  3. SELENIUM [Concomitant]
     Active Substance: SELENIUM
     Route: 048
  4. ZINC [Concomitant]
     Active Substance: ZINC
     Route: 048
  5. VITAMIN D2 [Concomitant]
     Active Substance: ERGOCALCIFEROL
     Route: 048
  6. MIEBO [Concomitant]
     Active Substance: PERFLUOROHEXYLOCTANE
     Route: 047
  7. XIIDRA [Concomitant]
     Active Substance: LIFITEGRAST
     Route: 047
  8. LEVOTHYROXINE SODIUM [Concomitant]
     Active Substance: LEVOTHYROXINE SODIUM
     Route: 048

REACTIONS (3)
  - Wrong technique in product usage process [Unknown]
  - Palpitations [Unknown]
  - Dyspnoea [Unknown]
